FAERS Safety Report 17780147 (Version 1)
Quarter: 2020Q2

REPORT INFORMATION
  Report Type: Spontaneous
  Country: JP (occurrence: JP)
  Receive Date: 20200514
  Receipt Date: 20200514
  Transmission Date: 20200714
  Serious: Yes (Other)
  Sender: FDA-Public Use
  Company Number: JP-SAKK-2020SA122754AA

PATIENT

DRUGS (2)
  1. CLEXANE 2000IU [Suspect]
     Active Substance: ENOXAPARIN SODIUM
     Indication: PRODUCT USED FOR UNKNOWN INDICATION
     Dosage: UNK
     Route: 058
  2. CLEXANE 2000IU [Suspect]
     Active Substance: ENOXAPARIN SODIUM
     Dosage: DOSE REDUCTION
     Route: 058

REACTIONS (2)
  - Renal impairment [Unknown]
  - Thrombosis [Unknown]
